FAERS Safety Report 26096667 (Version 1)
Quarter: 2025Q4

REPORT INFORMATION
  Report Type: Report from Study
  Country: US (occurrence: US)
  Receive Date: 20251127
  Receipt Date: 20251127
  Transmission Date: 20260118
  Serious: Yes (Death, Other)
  Sender: GILEAD
  Company Number: US-GILEAD-2025-0738567

PATIENT
  Age: 62 Year
  Sex: Male

DRUGS (2)
  1. AMBRISENTAN [Suspect]
     Active Substance: AMBRISENTAN
     Indication: Pulmonary arterial hypertension
     Dosage: 5MG DAILY
     Route: 048
     Dates: start: 202207
  2. TADALAFIL [Concomitant]
     Active Substance: TADALAFIL
     Dosage: UNKNOWN

REACTIONS (1)
  - Death [Fatal]

NARRATIVE: CASE EVENT DATE: 20251123
